FAERS Safety Report 6689240-9 (Version None)
Quarter: 2010Q2

REPORT INFORMATION
  Report Type: 
  Country: None (occurrence: None)
  Receive Date: 20100420
  Receipt Date: 20100416
  Transmission Date: 20101027
  Serious: Yes (Disabling)
  Sender: FDA-Public Use
  Company Number: PH-MERCK-0910PHL00001

PATIENT
  Age: 56 Year
  Sex: Male

DRUGS (5)
  1. JANUMET [Suspect]
     Indication: DIABETES MELLITUS
     Route: 048
     Dates: start: 20090114, end: 20090115
  2. JANUVIA [Concomitant]
     Indication: DIABETES MELLITUS
     Route: 048
     Dates: end: 20090101
  3. METFORMIN [Concomitant]
     Indication: DIABETES MELLITUS
     Route: 048
     Dates: end: 20090101
  4. GLIMEPIRIDE [Concomitant]
     Indication: DIABETES MELLITUS
     Route: 048
     Dates: start: 20030101
  5. INSULIN HUMAN [Concomitant]
     Indication: DIABETES MELLITUS
     Route: 058
     Dates: start: 20050101

REACTIONS (3)
  - BALANCE DISORDER [None]
  - DIZZINESS [None]
  - JOINT SPRAIN [None]
